FAERS Safety Report 8610573-0 (Version None)
Quarter: 2012Q3

REPORT INFORMATION
  Report Type: 
  Country: None (occurrence: None)
  Receive Date: 20120423
  Receipt Date: 20100504
  Transmission Date: 20120928
  Serious: Yes (Other)
  Sender: FDA-Public Use
  Company Number: PHHY2010US29237

PATIENT
  Sex: Female

DRUGS (1)
  1. FEMARA [Suspect]

REACTIONS (7)
  - VIRAL INFECTION [None]
  - HEADACHE [None]
  - ORAL PAIN [None]
  - ORAL DISCOMFORT [None]
  - ABDOMINAL PAIN UPPER [None]
  - INSOMNIA [None]
  - NASAL DISCOMFORT [None]
